FAERS Safety Report 21098061 (Version 6)
Quarter: 2023Q1

REPORT INFORMATION
  Report Type: Spontaneous
  Country: LT (occurrence: LT)
  Receive Date: 20220719
  Receipt Date: 20230105
  Transmission Date: 20230418
  Serious: Yes (Hospitalization, Other)
  Sender: FDA-Public Use
  Company Number: LT-MYLANLABS-2022M1039761

PATIENT
  Age: 61 Year
  Sex: Female

DRUGS (46)
  1. OLANZAPINE [Interacting]
     Active Substance: OLANZAPINE
     Indication: Product used for unknown indication
     Dosage: 2.5 MILLIGRAM, ONCE A DAY
     Route: 065
  2. OLANZAPINE [Interacting]
     Active Substance: OLANZAPINE
     Dosage: 15 MILLIGRAM, ONCE A DAY
     Route: 065
  3. OLANZAPINE [Interacting]
     Active Substance: OLANZAPINE
     Dosage: 10 MILLIGRAM, ONCE A DAY
     Route: 065
  4. BENSERAZIDE [Suspect]
     Active Substance: BENSERAZIDE
     Indication: Parkinson^s disease
     Dosage: 25 MILLIGRAM
     Route: 065
  5. BENSERAZIDE [Suspect]
     Active Substance: BENSERAZIDE
     Indication: Product used for unknown indication
     Dosage: UNK (INCREASED DOSE)
     Route: 065
  6. BENSERAZIDE [Suspect]
     Active Substance: BENSERAZIDE
     Dosage: 125 MILLIGRAM, ONCE A DAY (25 MILLIGRAM, 5XD )
     Route: 048
  7. BENSERAZIDE [Suspect]
     Active Substance: BENSERAZIDE
     Dosage: 100 MILLIGRAM, ONCE A DAY ((25 MG, 4X PER DAY ) )
     Route: 065
  8. BENSERAZIDE [Suspect]
     Active Substance: BENSERAZIDE
     Dosage: 125 MILLIGRAM, ONCE A DAY (25 MILLIGRAM, 5XD )
     Route: 048
  9. BENSERAZIDE [Suspect]
     Active Substance: BENSERAZIDE
     Dosage: 125 MILLIGRAM, ONCE A DAY (25 MILLIGRAM, 5XD )
     Route: 048
  10. BENSERAZIDE [Suspect]
     Active Substance: BENSERAZIDE
     Dosage: 125 MILLIGRAM, ONCE A DAY (25 MILLIGRAM, 5XD )
     Route: 048
  11. BENSERAZIDE\LEVODOPA [Suspect]
     Active Substance: BENSERAZIDE\LEVODOPA
     Indication: Parkinson^s disease
     Dosage: LEVODOPA AND BENSERAZIDE (100 MG AND 25 MG FIVE TIMES A DAY)
     Route: 065
  12. BROMAZEPAM [Suspect]
     Active Substance: BROMAZEPAM
     Indication: Sleep disorder
     Dosage: 6 MILLIGRAM, ONCE A DAY ()
     Route: 065
  13. BROMAZEPAM [Suspect]
     Active Substance: BROMAZEPAM
     Indication: Agitation
  14. BROMAZEPAM [Suspect]
     Active Substance: BROMAZEPAM
     Indication: Anxiety
  15. BROMAZEPAM [Suspect]
     Active Substance: BROMAZEPAM
     Indication: Psychotic disorder
  16. CLOZAPINE [Suspect]
     Active Substance: CLOZAPINE
     Indication: Hallucination, visual
     Dosage: 25 MILLIGRAM, ONCE A DAY (25 MG, PER DAY, WITH A GRADUAL DOSE )
     Route: 065
  17. CLOZAPINE [Suspect]
     Active Substance: CLOZAPINE
     Indication: Behaviour disorder
     Dosage: UNK, ONCE A DAY
     Route: 065
  18. CLOZAPINE [Suspect]
     Active Substance: CLOZAPINE
     Indication: Psychotic disorder
     Dosage: 150 MILLIGRAM, ONCE A DAY (WITH A GRADUAL DOSE TITRATION TO 150 )
     Route: 065
  19. CLOZAPINE [Suspect]
     Active Substance: CLOZAPINE
     Indication: Parkinson^s disease psychosis
     Dosage: 150 MILLIGRAM, ONCE A DAY (WITH A GRADUAL DOSE TITRATION TO 150 )
     Route: 065
  20. DIAZEPAM [Suspect]
     Active Substance: DIAZEPAM
     Indication: Anxiety
     Dosage: UNK
     Route: 065
  21. DIAZEPAM [Suspect]
     Active Substance: DIAZEPAM
     Indication: Tension
     Dosage: 10 MILLIGRAM, ONCE A DAY
     Route: 065
  22. LEVODOPA [Suspect]
     Active Substance: LEVODOPA
     Indication: Parkinson^s disease
     Dosage: 100 MILLIGRAM
     Route: 065
  23. LEVODOPA [Suspect]
     Active Substance: LEVODOPA
     Dosage: 100 MILLIGRAM
     Route: 065
  24. LEVODOPA [Suspect]
     Active Substance: LEVODOPA
     Dosage: 100 MILLIGRAM, ONCE A DAY
     Route: 065
  25. LEVODOPA [Suspect]
     Active Substance: LEVODOPA
     Dosage: UNK (INMCREASED DOSE)
     Route: 065
  26. MIRTAZAPINE [Suspect]
     Active Substance: MIRTAZAPINE
     Indication: Agitation
     Dosage: 30 MILLIGRAM, ONCE A DAY
     Route: 065
  27. MIRTAZAPINE [Suspect]
     Active Substance: MIRTAZAPINE
     Indication: Sleep disorder
     Dosage: 15 MILLIGRAM, ONCE A DAY
     Route: 065
  28. MIRTAZAPINE [Suspect]
     Active Substance: MIRTAZAPINE
     Indication: Anxiety
     Dosage: 30 MILLIGRAM, ONCE A DAY
     Route: 065
  29. MIRTAZAPINE [Suspect]
     Active Substance: MIRTAZAPINE
     Indication: Psychotic disorder
  30. QUETIAPINE [Suspect]
     Active Substance: QUETIAPINE
     Indication: Depression
     Dosage: UNK UNK, ONCE A DAY
     Route: 065
  31. QUETIAPINE [Suspect]
     Active Substance: QUETIAPINE
     Dosage: UNK UNK, ONCE A DAY
     Route: 065
  32. QUETIAPINE [Suspect]
     Active Substance: QUETIAPINE
     Dosage: 25 MILLIGRAM, ONCE A DAY (25 MG AT NIGHT)
     Route: 065
  33. QUETIAPINE [Suspect]
     Active Substance: QUETIAPINE
     Dosage: 450 MILLIGRAM, ONCE A DAY
     Route: 065
  34. QUETIAPINE [Suspect]
     Active Substance: QUETIAPINE
     Dosage: 450 MILLIGRAM, ONCE A DAY
     Route: 065
  35. ROPINIROLE [Suspect]
     Active Substance: ROPINIROLE
     Indication: Parkinson^s disease
     Dosage: 8 MILLIGRAM, ONCE A DAY
     Route: 065
  36. ROPINIROLE [Suspect]
     Active Substance: ROPINIROLE
     Dosage: 20 MILLIGRAM, ONCE A DAY
     Route: 065
  37. ROPINIROLE [Suspect]
     Active Substance: ROPINIROLE
     Dosage: 12 MILLIGRAM, ONCE A DAY
     Route: 065
  38. ROPINIROLE [Suspect]
     Active Substance: ROPINIROLE
     Dosage: 20 MILLIGRAM, ONCE A DAY
     Route: 065
  39. ROPINIROLE [Suspect]
     Active Substance: ROPINIROLE
     Dosage: 8 MILLIGRAM, ONCE A DAY
     Route: 065
  40. SERTRALINE [Suspect]
     Active Substance: SERTRALINE HYDROCHLORIDE
     Indication: Anxiety
     Dosage: 150 MILLIGRAM, ONCE A DAY
     Route: 065
  41. SERTRALINE [Suspect]
     Active Substance: SERTRALINE HYDROCHLORIDE
     Indication: Depression
     Dosage: 125 MILLIGRAM, ONCE A DAY (125 MG IN MORNING)
     Route: 065
  42. TRIHEXYPHENIDYL [Suspect]
     Active Substance: TRIHEXYPHENIDYL
     Indication: Product used for unknown indication
     Dosage: 4 MILLIGRAM, ONCE A DAY
     Route: 065
  43. QUETIAPINE [Concomitant]
     Active Substance: QUETIAPINE
     Indication: Product used for unknown indication
     Dosage: 450 MILLIGRAM
     Route: 065
  44. DIAZEPAM [Concomitant]
     Active Substance: DIAZEPAM
     Indication: Anxiety
     Dosage: UP TO 10 MG/DAYUNK
     Route: 065
  45. DIAZEPAM [Concomitant]
     Active Substance: DIAZEPAM
     Indication: Tension
  46. TRIHEXYPHENIDYL [Concomitant]
     Active Substance: TRIHEXYPHENIDYL
     Indication: Product used for unknown indication

REACTIONS (11)
  - Neutropenia [Unknown]
  - Intentional product misuse [Unknown]
  - Drug ineffective [Recovering/Resolving]
  - Condition aggravated [Recovering/Resolving]
  - On and off phenomenon [Not Recovered/Not Resolved]
  - Muscle spasms [Unknown]
  - Labelled drug-disease interaction issue [Unknown]
  - Movement disorder [Unknown]
  - Speech disorder [Unknown]
  - Mobility decreased [Unknown]
  - General physical health deterioration [Unknown]
